FAERS Safety Report 4415557-4 (Version None)
Quarter: 2004Q3

REPORT INFORMATION
  Report Type: 
  Country: None (occurrence: None)
  Receive Date: 20040730
  Receipt Date: 20040714
  Transmission Date: 20050211
  Serious: Yes (Hospitalization)
  Sender: FDA-Public Use
  Company Number: ATO-02-0291

PATIENT
  Age: 74 Year
  Sex: Female

DRUGS (1)
  1. TRISENOX [Suspect]
     Indication: MYELODYSPLASTIC SYNDROME
     Dosage: 0.3 MG/KG DURING LOAD (0.25 MG/KG, 5 DOSE LOAD: 2X/WK)  , IVI
     Route: 042
     Dates: start: 20020722, end: 20021107

REACTIONS (1)
  - NEUTROPENIC SEPSIS [None]
